FAERS Safety Report 6264114-6 (Version None)
Quarter: 2009Q3

REPORT INFORMATION
  Report Type: 
  Country: None (occurrence: None)
  Receive Date: 20090706
  Receipt Date: 20090223
  Transmission Date: 20100115
  Serious: Yes (Hospitalization)
  Sender: FDA-Public Use
  Company Number: 616333

PATIENT
  Age: 65 Year
  Sex: Female
  Weight: 80 kg

DRUGS (14)
  1. CELLCEPT [Suspect]
     Indication: MULTIPLE SCLEROSIS
     Dates: end: 20080201
  2. REBIF [Suspect]
     Indication: MULTIPLE SCLEROSIS
     Dosage: SUBCUTANEOUS
     Route: 058
     Dates: start: 20060601
  3. ZANAFLEX [Concomitant]
  4. LEVOTHYROXINE SODIUM [Concomitant]
  5. ARICEPT [Concomitant]
  6. AMBIEN CR [Concomitant]
  7. PROVIGIL [Concomitant]
  8. SINGULAIR [Concomitant]
  9. SYMBICORT [Concomitant]
  10. ANTIVERT (MECLOZINE) [Concomitant]
  11. LODINE [Concomitant]
  12. IMITREX (SUMATRIPTAN SUCCINATE) [Concomitant]
  13. LEXAPRO [Concomitant]
  14. ALEVE [Concomitant]

REACTIONS (6)
  - BREAST CANCER [None]
  - INFLUENZA LIKE ILLNESS [None]
  - INJECTION SITE REACTION [None]
  - MALAISE [None]
  - SEPSIS [None]
  - STAPHYLOCOCCAL INFECTION [None]
